FAERS Safety Report 4702977-3 (Version None)
Quarter: 2005Q2

REPORT INFORMATION
  Report Type: 
  Country: None (occurrence: None)
  Receive Date: 20050629
  Receipt Date: 20050621
  Transmission Date: 20051028
  Serious: Yes (Hospitalization)
  Sender: FDA-Public Use
  Company Number: PHBS2005NL08850

PATIENT
  Age: 56 Year
  Sex: Female

DRUGS (4)
  1. CARBAMAZEPINE [Suspect]
     Dosage: 400 MG, BID
     Route: 048
     Dates: start: 19990617, end: 20041121
  2. CIPROFLOXACIN [Suspect]
     Indication: EAR INFECTION
     Dosage: 500 MG, BID
     Route: 065
     Dates: start: 20041012, end: 20041023
  3. HYDROXYZINE [Concomitant]
     Dosage: 25 MG, 7QD
     Route: 065
     Dates: end: 20041207
  4. NAPROXEN [Concomitant]
     Dosage: 250 MG, QD
     Route: 065

REACTIONS (8)
  - BACTERAEMIA [None]
  - CHILLS [None]
  - DERMATITIS EXFOLIATIVE [None]
  - FEELING ABNORMAL [None]
  - PRURITUS [None]
  - PYREXIA [None]
  - RASH PAPULAR [None]
  - RASH PUSTULAR [None]
